FAERS Safety Report 13131579 (Version 1)
Quarter: 2017Q1

REPORT INFORMATION
  Report Type: Spontaneous
  Country: GB (occurrence: GB)
  Receive Date: 20170119
  Receipt Date: 20170119
  Transmission Date: 20170428
  Serious: Yes (Hospitalization)
  Sender: FDA-Public Use
  Company Number: GB-TEVA-730427ISR

PATIENT
  Age: 55 Year
  Sex: Male

DRUGS (6)
  1. CALCIUM [Interacting]
     Active Substance: CALCIUM
     Indication: OSTEOPOROSIS PROPHYLAXIS
     Route: 048
  2. COLECALCIFEROL [Interacting]
     Active Substance: CHOLECALCIFEROL
     Indication: OSTEOPOROSIS PROPHYLAXIS
     Route: 065
  3. ETORICOXIB [Suspect]
     Active Substance: ETORICOXIB
     Indication: ARTHRALGIA
     Route: 065
  4. ETANERCEPT [Concomitant]
     Active Substance: ETANERCEPT
     Route: 065
  5. CALCITRIOL. [Suspect]
     Active Substance: CALCITRIOL
     Indication: PSORIASIS
     Dosage: 40 MILLIGRAM DAILY;
     Route: 061
  6. ACITRETIN. [Concomitant]
     Active Substance: ACITRETIN
     Route: 065

REACTIONS (4)
  - Drug interaction [Recovered/Resolved]
  - Overdose [Recovered/Resolved]
  - Hypercalcaemia [Recovered/Resolved]
  - Renal injury [Recovered/Resolved]
